FAERS Safety Report 24935542 (Version 1)
Quarter: 2025Q1

REPORT INFORMATION
  Report Type: Report from Study
  Country: US (occurrence: US)
  Receive Date: 20250206
  Receipt Date: 20250206
  Transmission Date: 20250409
  Serious: Yes (Hospitalization, Other)
  Sender: UCB
  Company Number: US-UCBSA-2025000319

PATIENT
  Age: 34 Year
  Sex: Male

DRUGS (1)
  1. ROZANOLIXIZUMAB [Suspect]
     Active Substance: ROZANOLIXIZUMAB
     Indication: Myasthenia gravis
     Dosage: UNK, WEEKLY (QW)
     Dates: start: 20241212, end: 20241214

REACTIONS (2)
  - Pneumonia [Recovered/Resolved]
  - Myasthenia gravis [Unknown]

NARRATIVE: CASE EVENT DATE: 20241214
